FAERS Safety Report 12432762 (Version 1)
Quarter: 2016Q2

REPORT INFORMATION
  Report Type: Spontaneous
  Country: US (occurrence: None)
  Receive Date: 20160602
  Receipt Date: 20160602
  Transmission Date: 20160815
  Serious: Yes (Hospitalization, Other)
  Sender: FDA-Public Use
  Company Number: None

PATIENT
  Age: 62 Year
  Sex: Male

DRUGS (1)
  1. TICE BCG [Suspect]
     Active Substance: BACILLUS CALMETTE-GUERIN SUBSTRAIN TICE LIVE ANTIGEN
     Route: 043

REACTIONS (8)
  - Hypotension [None]
  - Chills [None]
  - Tremor [None]
  - Heart rate increased [None]
  - Sepsis [None]
  - Blood pressure systolic decreased [None]
  - Urinary tract infection [None]
  - Pain [None]

NARRATIVE: CASE EVENT DATE: 20131114
